FAERS Safety Report 19648171 (Version 4)
Quarter: 2021Q4

REPORT INFORMATION
  Report Type: Report from Study
  Country: US (occurrence: US)
  Receive Date: 20210803
  Receipt Date: 20211009
  Transmission Date: 20220303
  Serious: Yes (Hospitalization)
  Sender: FDA-Public Use
  Company Number: US-ROCHE-2859004

PATIENT
  Age: 50 Year
  Sex: Female

DRUGS (3)
  1. ATEZOLIZUMAB [Suspect]
     Active Substance: ATEZOLIZUMAB
     Indication: Pancreatic carcinoma
     Dosage: 1 INFUSION ADMINISTERED. WILL CONTINUE UNTIL PROGRESS/ UNACCEPTABLE TOX/9 (+3) INFUSIONS
     Route: 041
     Dates: start: 20210527
  2. GEMCITABINE [Concomitant]
     Active Substance: GEMCITABINE
     Dates: start: 20210527
  3. PACLITAXEL [Concomitant]
     Active Substance: PACLITAXEL
     Dates: start: 20210413

REACTIONS (3)
  - Abdominal pain [Recovered/Resolved]
  - Biliary tract infection [Recovered/Resolved]
  - Sepsis [Recovered/Resolved]

NARRATIVE: CASE EVENT DATE: 20210613
